FAERS Safety Report 10240979 (Version 1)
Quarter: 2014Q2

REPORT INFORMATION
  Report Type: Other
  Country: GB (occurrence: GB)
  Receive Date: 20140617
  Receipt Date: 20140617
  Transmission Date: 20141212
  Serious: Yes (Life-Threatening, Hospitalization)
  Sender: FDA-Public Use
  Company Number: GB-PERRIGO-14GB005770

PATIENT
  Age: 21 Month
  Sex: Female
  Weight: 11 kg

DRUGS (4)
  1. IBUPROFEN 16028/0027 200 MG [Suspect]
     Indication: DISCOMFORT
     Dosage: UNK MG, TID
     Route: 048
  2. IBUPROFEN 16028/0027 200 MG [Suspect]
     Indication: PYREXIA
  3. LACTULOSE [Concomitant]
     Indication: PRODUCT USED FOR UNKNOWN INDICATION
     Dosage: UNK, UNK
     Route: 065
  4. MOVICOL                            /01625101/ [Concomitant]
     Indication: PRODUCT USED FOR UNKNOWN INDICATION
     Dosage: UNK, UNK
     Route: 065

REACTIONS (1)
  - Necrotising fasciitis [Recovered/Resolved with Sequelae]
